FAERS Safety Report 15557144 (Version 1)
Quarter: 2018Q4

REPORT INFORMATION
  Report Type: Spontaneous
  Country: RU (occurrence: RU)
  Receive Date: 20181026
  Receipt Date: 20181026
  Transmission Date: 20190205
  Serious: Yes (Death)
  Sender: FDA-Public Use
  Company Number: RU-BAUSCH-BL-2018-029668

PATIENT
  Age: 3 Year
  Sex: Male

DRUGS (3)
  1. AMMONAPS [Suspect]
     Active Substance: SODIUM PHENYLBUTYRATE
     Indication: ORNITHINE TRANSCARBAMOYLASE DEFICIENCY
  2. AMMONUL [Suspect]
     Active Substance: SODIUM BENZOATE\SODIUM PHENYLACETATE
     Indication: HYPERAMMONAEMIC CRISIS
     Dosage: SUPPORTING DOSE OF 13 ML AMMONUL PLUS AFTER RECEIVING THE LOADING DOSE OF 37 ML.
     Route: 065
     Dates: start: 20181014, end: 20181014
  3. AMMONAPS [Suspect]
     Active Substance: SODIUM PHENYLBUTYRATE
     Indication: UREA CYCLE DISORDER
     Route: 065
     Dates: start: 201703, end: 201810

REACTIONS (1)
  - Hyperammonaemic crisis [Fatal]

NARRATIVE: CASE EVENT DATE: 20181014
